FAERS Safety Report 6360646-0 (Version None)
Quarter: 2009Q3

REPORT INFORMATION
  Report Type: 
  Country: None (occurrence: None)
  Receive Date: 20090915
  Receipt Date: 20090901
  Transmission Date: 20100115
  Serious: Yes (Other)
  Sender: FDA-Public Use
  Company Number: 1-19714161

PATIENT
  Age: 33 Year
  Sex: Male
  Weight: 52.1637 kg

DRUGS (1)
  1. CARBAMAZEPINE [Suspect]
     Indication: EPILEPSY
     Dosage: 400MG Q AM, 800MG Q PM, ORAL
     Route: 048
     Dates: start: 20090807, end: 20090810

REACTIONS (2)
  - GRAND MAL CONVULSION [None]
  - PRODUCT SUBSTITUTION ISSUE [None]
